FAERS Safety Report 18356419 (Version 1)
Quarter: 2020Q4

REPORT INFORMATION
  Report Type: Spontaneous
  Country: PT (occurrence: PT)
  Receive Date: 20201007
  Receipt Date: 20201007
  Transmission Date: 20210114
  Serious: Yes (Death, Hospitalization)
  Sender: FDA-Public Use
  Company Number: PT-EXELIXIS-CABO-20033570

PATIENT
  Age: 64 Year
  Sex: Male

DRUGS (1)
  1. CABOMETYX [Suspect]
     Active Substance: CABOZANTINIB S-MALATE
     Indication: CLEAR CELL RENAL CELL CARCINOMA
     Dosage: UNK

REACTIONS (6)
  - Cytomegalovirus colitis [Unknown]
  - General physical health deterioration [Fatal]
  - Clostridium difficile colitis [Unknown]
  - Rectal abscess [Unknown]
  - Anal fistula [Unknown]
  - Proctitis ulcerative [Unknown]
